FAERS Safety Report 5718982-4 (Version None)
Quarter: 2008Q2

REPORT INFORMATION
  Report Type: 
  Country: None (occurrence: None)
  Receive Date: 20080425
  Receipt Date: 20080417
  Transmission Date: 20081010
  Serious: Yes (Hospitalization)
  Sender: FDA-Public Use
  Company Number: PHHY2008JP05758

PATIENT

DRUGS (3)
  1. DIOVAN [Suspect]
     Dosage: 1120 MG, ONCE/SINGLE
     Route: 048
     Dates: start: 20080416
  2. TENORMIN [Suspect]
     Dosage: 50 MG 15 TIMES
     Route: 048
  3. NORVASC [Suspect]
     Dosage: 5 MG 15 TIMES
     Route: 048

REACTIONS (2)
  - BLOOD PRESSURE DECREASED [None]
  - OVERDOSE [None]
